FAERS Safety Report 25094207 (Version 1)
Quarter: 2025Q1

REPORT INFORMATION
  Report Type: Spontaneous
  Country: US (occurrence: None)
  Receive Date: 20250318
  Receipt Date: 20250318
  Transmission Date: 20250408
  Serious: Yes (Other)
  Sender: FDA-CTU
  Company Number: None

PATIENT
  Age: 41 Year
  Sex: Female

DRUGS (6)
  1. MONOFERRIC [Suspect]
     Active Substance: FERRIC DERISOMALTOSE
     Indication: Iron deficiency anaemia
     Route: 042
     Dates: start: 20250314, end: 20250314
  2. Vitamin D3 50 mcg PO daily [Concomitant]
  3. FeoSol 325 mg PO daily [Concomitant]
  4. Ketorolac 10 mg PO prn daily [Concomitant]
  5. Myfembree 40mg-1mg-0.5 mg PO daily [Concomitant]
  6. Pantoprazole 40 mg PO daily [Concomitant]

REACTIONS (5)
  - Chest pain [None]
  - Back pain [None]
  - Headache [None]
  - Nausea [None]
  - Infusion related reaction [None]

NARRATIVE: CASE EVENT DATE: 20250314
